FAERS Safety Report 6803088-3 (Version None)
Quarter: 2010Q2

REPORT INFORMATION
  Report Type: 
  Country: None (occurrence: None)
  Receive Date: 20100628
  Receipt Date: 20100618
  Transmission Date: 20101027
  Serious: Yes (Life-Threatening, Hospitalization)
  Sender: FDA-Public Use
  Company Number: US-ABBOTT-10P-163-0638251-00

PATIENT
  Sex: Female
  Weight: 52.9 kg

DRUGS (18)
  1. HUMIRA [Suspect]
     Indication: RHEUMATOID ARTHRITIS
     Route: 058
     Dates: start: 20000911, end: 20100315
  2. HUMIRA [Suspect]
     Route: 058
     Dates: start: 20100511
  3. METHOTREXATE [Concomitant]
     Indication: RHEUMATOID ARTHRITIS
     Dates: start: 20021007, end: 20080125
  4. METHOTREXATE [Concomitant]
     Dates: start: 20080126, end: 20080630
  5. METHOTREXATE [Concomitant]
     Dates: start: 20080910
  6. MOBIC [Concomitant]
     Indication: RHEUMATOID ARTHRITIS
     Dates: start: 20040115, end: 20090325
  7. MOBIC [Concomitant]
     Dates: start: 20090326
  8. CELEBREX [Concomitant]
     Indication: RHEUMATOID ARTHRITIS
     Dates: start: 19991101, end: 20040114
  9. PREDNISONE [Concomitant]
     Indication: RHEUMATOID ARTHRITIS
     Dates: start: 19900101
  10. METOPROLOL SUCCINATE [Concomitant]
     Indication: HYPERTENSION
     Dates: start: 20090325
  11. HYDROCHLOROTHIAZIDE [Concomitant]
     Indication: HYPERTENSION
     Dates: start: 20090331
  12. PRAVASTATIN [Concomitant]
     Indication: HYPERCHOLESTEROLAEMIA
     Dates: start: 20090812
  13. LYRICA [Concomitant]
     Indication: MYALGIA
     Dates: start: 20090519
  14. FOLIC ACID [Concomitant]
     Indication: VITAMIN SUPPLEMENTATION
     Dates: start: 19980801
  15. MULTI-VITAMIN [Concomitant]
     Indication: MEDICAL DIET
     Dates: start: 19500101
  16. CALCIUM CARBONATE [Concomitant]
     Indication: MEDICAL DIET
     Dates: start: 19520101
  17. PREVACID [Concomitant]
     Indication: GASTROOESOPHAGEAL REFLUX DISEASE
     Dates: start: 20020801
  18. ASPIRIN [Concomitant]
     Indication: CHEST DISCOMFORT
     Route: 048
     Dates: start: 20091027, end: 20100506

REACTIONS (1)
  - CORONARY ARTERY DISEASE [None]
